FAERS Safety Report 6699167-4 (Version None)
Quarter: 2010Q2

REPORT INFORMATION
  Report Type: 
  Country: None (occurrence: None)
  Receive Date: 20100421
  Receipt Date: 20090617
  Transmission Date: 20101027
  Serious: Yes (Other)
  Sender: FDA-Public Use
  Company Number: 20090247

PATIENT
  Age: 65 Year
  Sex: Female
  Weight: 119 kg

DRUGS (6)
  1. DEXFERRUM [Suspect]
     Dosage: 100 MG X 1 , 2 TIMES
     Dates: start: 20081001, end: 20081013
  2. OMEPRAZOLE [Concomitant]
  3. SIMVASTATIN [Concomitant]
  4. LEVOTHYROXINE SODIUM [Concomitant]
  5. LOTREL [Concomitant]
  6. GLYBURIDE [Concomitant]

REACTIONS (1)
  - ANAPHYLACTIC REACTION [None]
